FAERS Safety Report 12185022 (Version 1)
Quarter: 2016Q1

REPORT INFORMATION
  Report Type: Other
  Country: None (occurrence: US)
  Receive Date: 20160316
  Receipt Date: 20160316
  Transmission Date: 20160526
  Serious: Yes (Hospitalization)
  Sender: FDA-Public Use
  Company Number: US-RARE DISEASE THERAPEUTICS, INC.-1049197

PATIENT
  Age: 13 Year
  Sex: Male

DRUGS (3)
  1. PURIXAN [Suspect]
     Active Substance: MERCAPTOPURINE
     Indication: CROHN^S DISEASE
  2. MESALAMINE. [Suspect]
     Active Substance: MESALAMINE
  3. PREDNISONE. [Suspect]
     Active Substance: PREDNISONE

REACTIONS (2)
  - Off label use [None]
  - Crohn^s disease [Unknown]
